FAERS Safety Report 8429246-2 (Version None)
Quarter: 2012Q2

REPORT INFORMATION
  Report Type: 
  Country: None (occurrence: None)
  Receive Date: 20120612
  Receipt Date: 20120607
  Transmission Date: 20120825
  Serious: Yes (Other)
  Sender: FDA-Public Use
  Company Number: PHHY2012GR048706

PATIENT
  Age: 75 Year
  Sex: Male

DRUGS (1)
  1. STALEVO 100 [Suspect]
     Indication: PARKINSON'S DISEASE
     Dosage: UNK

REACTIONS (5)
  - PARALYSIS [None]
  - DYSPNOEA [None]
  - HYPERHIDROSIS [None]
  - CHOKING [None]
  - ASTHENIA [None]
